FAERS Safety Report 13906081 (Version 2)
Quarter: 2017Q4

REPORT INFORMATION
  Report Type: Spontaneous
  Country: US (occurrence: US)
  Receive Date: 20170825
  Receipt Date: 20171116
  Transmission Date: 20180320
  Serious: No
  Sender: FDA-Public Use
  Company Number: US-PFIZER INC-2017362949

PATIENT
  Age: 50 Year
  Sex: Female
  Weight: 67.59 kg

DRUGS (3)
  1. LETROZOLE. [Concomitant]
     Active Substance: LETROZOLE
     Indication: OVARIAN GRANULOSA CELL TUMOUR
     Dosage: 2.5 MG, DAILY
  2. IBRANCE [Suspect]
     Active Substance: PALBOCICLIB
     Indication: OVARIAN GRANULOSA CELL TUMOUR
     Dosage: 125 MG, CYCLIC (DAILY FOR 21 DAYS WITH 7 DAYS OFF)
     Dates: start: 20170714
  3. IBRANCE [Suspect]
     Active Substance: PALBOCICLIB
     Dosage: 125 MG, CYCLIC (DAILY FOR 21 DAYS WITH 7 DAYS OFF)
     Dates: start: 20170817

REACTIONS (1)
  - Product use in unapproved indication [Unknown]

NARRATIVE: CASE EVENT DATE: 20170714
